FAERS Safety Report 12118117 (Version 3)
Quarter: 2016Q2

REPORT INFORMATION
  Report Type: Report from Study
  Country: PR (occurrence: PR)
  Receive Date: 20160226
  Receipt Date: 20160505
  Transmission Date: 20160815
  Serious: Yes (Death, Other)
  Sender: FDA-Public Use
  Company Number: PR-ABBVIE-16K-131-1568121-00

PATIENT
  Age: 99 Year
  Sex: Male

DRUGS (1)
  1. HUMIRA [Suspect]
     Active Substance: ADALIMUMAB
     Indication: RHEUMATOID ARTHRITIS
     Route: 058
     Dates: start: 20140117, end: 20151106

REACTIONS (2)
  - Renal failure [Unknown]
  - Infarction [Fatal]

NARRATIVE: CASE EVENT DATE: 20151118
